FAERS Safety Report 9868053 (Version 1)
Quarter: 2014Q1

REPORT INFORMATION
  Report Type: Spontaneous
  Country: ES (occurrence: ES)
  Receive Date: 20140204
  Receipt Date: 20140204
  Transmission Date: 20141002
  Serious: Yes (Hospitalization)
  Sender: FDA-Public Use
  Company Number: ES-BAYER-2014-016527

PATIENT
  Age: 37 Year
  Sex: Male

DRUGS (4)
  1. ASPIRINA 500 MG COMPRIMIDOS EFERVESCENTES [Suspect]
     Indication: HEADACHE
     Dosage: UNK UNK, BID
     Route: 048
     Dates: start: 201312, end: 201312
  2. LEVITRA [Concomitant]
  3. RANITIDINA [Concomitant]
     Indication: GASTRIC DISORDER
  4. OMEPRAZOL [Concomitant]
     Indication: GASTRIC DISORDER

REACTIONS (7)
  - Vertigo [None]
  - Dizziness [Recovered/Resolved]
  - Tinnitus [Not Recovered/Not Resolved]
  - Deafness [Not Recovered/Not Resolved]
  - Vomiting [Recovered/Resolved]
  - Gait disturbance [Recovered/Resolved]
  - Labyrinthitis [None]
